FAERS Safety Report 7571467-5 (Version None)
Quarter: 2011Q2

REPORT INFORMATION
  Report Type: 
  Country: None (occurrence: None)
  Receive Date: 20110624
  Receipt Date: 20110620
  Transmission Date: 20111010
  Serious: No
  Sender: FDA-Public Use
  Company Number: US-PFIZER INC-2011028415

PATIENT
  Age: 50 Year
  Sex: Male
  Weight: 124.26 kg

DRUGS (2)
  1. ADVIL COLD AND SINUS [Suspect]
     Indication: SINUS CONGESTION
     Dosage: 2 CAPLETS 3 TIMES DAILY
     Dates: start: 20110101, end: 20110207
  2. ADVIL COLD AND SINUS [Suspect]
     Indication: NASOPHARYNGITIS

REACTIONS (1)
  - DRUG INEFFECTIVE [None]
